FAERS Safety Report 5684271-X (Version None)
Quarter: 2008Q1

REPORT INFORMATION
  Report Type: 
  Country: None (occurrence: None)
  Receive Date: 20080327
  Receipt Date: 20080327
  Transmission Date: 20080703
  Serious: No
  Sender: FDA-Public Use
  Company Number: None

PATIENT
  Age: 62 Year
  Sex: Male

DRUGS (3)
  1. CETUXIMAB [Suspect]
     Dosage: 990MG[500MG/M2] EVERY 2 WEEKS
     Route: 042
     Dates: start: 20080219
  2. GEMCITABINE [Suspect]
  3. OXALIPLATIN [Suspect]

REACTIONS (5)
  - ANAPHYLACTIC REACTION [None]
  - DRUG EFFECT DECREASED [None]
  - NAUSEA [None]
  - PARAESTHESIA [None]
  - VOMITING [None]
